FAERS Safety Report 8774135 (Version 2)
Quarter: 2012Q4

REPORT INFORMATION
  Report Type: 
  Country: US (occurrence: US)
  Receive Date: 20120907
  Receipt Date: 20121001
  Transmission Date: 20130627
  Serious: Yes (Other)
  Sender: FDA-Public Use
  Company Number: US-ASTRAZENECA-2012SE65501

PATIENT
  Age: 63 Year
  Sex: Female
  Weight: 72.1 kg

DRUGS (8)
  1. NEXIUM [Suspect]
     Indication: GASTROOESOPHAGEAL REFLUX DISEASE
     Route: 048
  2. NEXIUM [Suspect]
     Indication: GASTROOESOPHAGEAL REFLUX DISEASE
     Route: 048
  3. SEROQUEL XR [Suspect]
     Indication: DEPRESSION
     Route: 048
  4. SEROQUEL XR [Suspect]
     Indication: SLEEP DISORDER
     Route: 048
  5. CRESTOR [Suspect]
     Indication: BLOOD CHOLESTEROL ABNORMAL
     Route: 048
  6. HYDROCODONE [Concomitant]
     Indication: PAIN
  7. XANAX [Concomitant]
  8. SYNTHROID [Concomitant]

REACTIONS (4)
  - Accident [Unknown]
  - Rib fracture [Recovering/Resolving]
  - Pain [Unknown]
  - Laryngitis [Unknown]
